FAERS Safety Report 4451285-7 (Version None)
Quarter: 2004Q3

REPORT INFORMATION
  Report Type: 
  Country: None (occurrence: None)
  Receive Date: 20040915
  Receipt Date: 20040915
  Transmission Date: 20050211
  Serious: Yes (Life-Threatening, Hospitalization)
  Sender: FDA-Public Use
  Company Number: None

PATIENT
  Age: 48 Year
  Sex: Female
  Weight: 68.0396 kg

DRUGS (3)
  1. ZOLOFT [Suspect]
     Indication: DEPRESSION
     Dosage: ONCE DAILY
     Dates: start: 20011209, end: 20020814
  2. ESTROGEN REPLACEMENT THERAPY [Concomitant]
  3. ESTRATEST [Concomitant]

REACTIONS (2)
  - MANIA [None]
  - SUICIDE ATTEMPT [None]
